FAERS Safety Report 5470792-1 (Version None)
Quarter: 2007Q3

REPORT INFORMATION
  Report Type: 
  Country: None (occurrence: None)
  Receive Date: 20070928
  Receipt Date: 20070925
  Transmission Date: 20080115
  Serious: Yes (Other)
  Sender: FDA-Public Use
  Company Number: BR-ASTRAZENECA-2007UW22447

PATIENT
  Age: 45 Year
  Sex: Male
  Weight: 80 kg

DRUGS (3)
  1. CRESTOR [Suspect]
     Indication: HYPERCHOLESTEROLAEMIA
     Route: 048
     Dates: start: 20070601, end: 20070904
  2. LOVITAR [Concomitant]
     Indication: HYPERTENSION
     Dosage: 50/12.5 MG
     Route: 048
     Dates: start: 20070601, end: 20070901
  3. PROXIMAX [Concomitant]
     Indication: DEPRESSION
     Route: 048
     Dates: start: 20070601, end: 20070901

REACTIONS (1)
  - GLAUCOMA [None]
